FAERS Safety Report 9265855 (Version 6)
Quarter: 2014Q2

REPORT INFORMATION
  Report Type: Report from Study
  Country: JP (occurrence: JP)
  Receive Date: 20130501
  Receipt Date: 20140401
  Transmission Date: 20141212
  Serious: Yes (Hospitalization)
  Sender: FDA-Public Use
  Company Number: JP-AMGEN-JPNCT2013030580

PATIENT
  Age: 50 Year
  Sex: Male
  Weight: 76 kg

DRUGS (13)
  1. ROMIPLOSTIM - KHK [Suspect]
     Indication: IMMUNE THROMBOCYTOPENIC PURPURA
     Dosage: 3 MUG/KG, Q2WK
     Route: 058
     Dates: start: 20110802
  2. PREDONINE [Concomitant]
     Indication: IMMUNE THROMBOCYTOPENIC PURPURA
     Dosage: 30 MG, UNK
     Route: 048
     Dates: start: 20110719
  3. NORVASC [Concomitant]
     Indication: HYPERTENSION
     Dosage: UNK
     Route: 048
  4. GASTER [Concomitant]
     Indication: PROPHYLAXIS
     Dosage: UNK
     Route: 048
  5. NASONEX [Concomitant]
     Indication: HAEMORRHAGIC ANAEMIA
     Dosage: UNK
     Route: 045
  6. LIVALO [Concomitant]
     Indication: PROPHYLAXIS
     Dosage: UNK
     Route: 048
  7. ADONA                              /00056903/ [Concomitant]
     Indication: HAEMORRHAGIC ANAEMIA
     Dosage: UNK
     Route: 048
  8. TRANSAMIN [Concomitant]
     Indication: IMMUNE THROMBOCYTOPENIC PURPURA
     Dosage: 750 MG, UNK
     Route: 048
     Dates: start: 20121219, end: 20121221
  9. ARTIST [Concomitant]
     Indication: HYPERTENSION
     Dosage: UNK
     Route: 048
  10. MEIACT [Concomitant]
     Indication: PROPHYLAXIS
     Dosage: UNK
     Route: 048
  11. ALLELOCK [Concomitant]
     Indication: PROPHYLAXIS
     Dosage: UNK
     Route: 048
  12. VENOGLOBULIN-IH [Concomitant]
     Indication: IMMUNE THROMBOCYTOPENIC PURPURA
     Dosage: 20000 MG, UNK
     Route: 042
     Dates: start: 20130121, end: 20130125
  13. CALSLOT [Concomitant]
     Indication: HYPERTENSION
     Dosage: UNK
     Route: 048

REACTIONS (9)
  - Cardiac failure [Recovering/Resolving]
  - Gastrooesophageal reflux disease [Recovering/Resolving]
  - Renal impairment [Recovered/Resolved]
  - Neutrophil count increased [Not Recovered/Not Resolved]
  - Renal impairment [Not Recovered/Not Resolved]
  - Paraesthesia [Recovered/Resolved]
  - Herpes zoster [Recovered/Resolved]
  - Nasopharyngitis [Recovered/Resolved]
  - Folliculitis [Recovered/Resolved]
